FAERS Safety Report 4737261-5 (Version None)
Quarter: 2005Q3

REPORT INFORMATION
  Report Type: 
  Country: None (occurrence: None)
  Receive Date: 20050808
  Receipt Date: 20050801
  Transmission Date: 20060218
  Serious: Yes (Other)
  Sender: FDA-Public Use
  Company Number: PHEH2005US08495

PATIENT
  Age: 75 Year
  Sex: Female

DRUGS (4)
  1. STARLIX [Suspect]
     Indication: DIABETES MELLITUS
     Dosage: 120 MG, QD
     Route: 048
     Dates: start: 20050718
  2. METFORMIN [Concomitant]
     Dosage: 500 MG, TID
     Route: 048
  3. INSULIN [Concomitant]
  4. ZOLOFT [Concomitant]

REACTIONS (1)
  - HYPOTENSION [None]
